FAERS Safety Report 9839926 (Version 1)
Quarter: 2014Q1

REPORT INFORMATION
  Report Type: Spontaneous
  Country: US (occurrence: US)
  Receive Date: 20140124
  Receipt Date: 20140124
  Transmission Date: 20141002
  Serious: No
  Sender: FDA-Public Use
  Company Number: US-009507513-1401USA001738

PATIENT
  Age: 58 Year
  Sex: Female

DRUGS (2)
  1. PEGINTRON [Suspect]
     Indication: HEPATITIS C
     Dosage: UNK
     Dates: start: 20140103
  2. REBETOL [Suspect]
     Dosage: UNK
     Route: 048

REACTIONS (5)
  - Injury associated with device [Unknown]
  - Injection site bruising [Unknown]
  - Pyrexia [Unknown]
  - Accidental exposure to product [Unknown]
  - Wrong technique in drug usage process [Unknown]
